FAERS Safety Report 8045291-3 (Version None)
Quarter: 2012Q1

REPORT INFORMATION
  Report Type: 
  Country: None (occurrence: None)
  Receive Date: 20120113
  Receipt Date: 20120112
  Transmission Date: 20120608
  Serious: Yes (Death)
  Sender: FDA-Public Use
  Company Number: CN-ROCHE-798977

PATIENT
  Sex: Female
  Weight: 45 kg

DRUGS (4)
  1. FLUOROURACIL [Concomitant]
     Indication: COLON CANCER
     Dates: start: 20110808, end: 20111010
  2. AVASTIN [Suspect]
     Indication: COLON CANCER
     Route: 041
     Dates: start: 20110808, end: 20110903
  3. OXALIPLATIN [Concomitant]
     Indication: COLON CANCER
     Dates: start: 20110808, end: 20111010
  4. LEUCOVORIN CALCIUM [Concomitant]
     Indication: COLON CANCER
     Dates: start: 20110808, end: 20111010

REACTIONS (2)
  - HYPERTENSION [None]
  - DEATH [None]
